FAERS Safety Report 8401073-1 (Version None)
Quarter: 2012Q2

REPORT INFORMATION
  Report Type: 
  Country: None (occurrence: None)
  Receive Date: 20120525
  Receipt Date: 20120510
  Transmission Date: 20120825
  Serious: Yes (Hospitalization)
  Sender: FDA-Public Use
  Company Number: 2012P1025657

PATIENT
  Age: 54 Year
  Sex: Female

DRUGS (9)
  1. LASIX [Concomitant]
  2. MARIAL [Concomitant]
  3. INSULIN [Concomitant]
  4. ENALAPRIL MALEATE [Concomitant]
  5. CEFTAZIDIME [Suspect]
     Indication: ANTIBIOTIC PROPHYLAXIS
     Dosage: IV
     Route: 042
     Dates: start: 20120221, end: 20120229
  6. CEFTAZIDIME [Suspect]
     Indication: ANTIBIOTIC PROPHYLAXIS
     Dosage: IV
     Route: 042
     Dates: start: 20120331, end: 20120405
  7. LIPIDEX [Concomitant]
  8. NORMATIN [Concomitant]
  9. AMICOR [Concomitant]

REACTIONS (3)
  - WOUND INFECTION [None]
  - STREPTOCOCCUS TEST POSITIVE [None]
  - MEDIASTINITIS [None]
